FAERS Safety Report 9173381 (Version 1)
Quarter: 2013Q1

REPORT INFORMATION
  Report Type: Spontaneous
  Country: US (occurrence: None)
  Receive Date: 20130319
  Receipt Date: 20130319
  Transmission Date: 20140127
  Serious: Yes (Other)
  Sender: FDA-Public Use
  Company Number: None

PATIENT
  Age: 31 Year
  Sex: Female
  Weight: 94.35 kg

DRUGS (2)
  1. ICY HOT LOTION ICY HOT [Suspect]
     Indication: MYALGIA
     Dosage: 1 LAYER OF LOTION ONCE
     Dates: start: 20130317, end: 20130318
  2. ICY HOT LOTION ICY HOT [Suspect]
     Indication: ARTHRALGIA
     Dosage: 1 LAYER OF LOTION ONCE
     Dates: start: 20130317, end: 20130318

REACTIONS (1)
  - Application site pain [None]
